FAERS Safety Report 11145087 (Version 1)
Quarter: 2015Q2

REPORT INFORMATION
  Report Type: Spontaneous
  Country: US (occurrence: US)
  Receive Date: 20150526
  Receipt Date: 20150526
  Transmission Date: 20150821
  Serious: No
  Sender: FDA-Public Use
  Company Number: US-SHIRE-US201504496

PATIENT
  Age: 63 Year
  Sex: Female

DRUGS (1)
  1. ADDERALL XR [Suspect]
     Active Substance: AMPHETAMINE ASPARTATE\AMPHETAMINE SULFATE\DEXTROAMPHETAMINE SACCHARATE\DEXTROAMPHETAMINE SULFATE
     Indication: ATTENTION DEFICIT/HYPERACTIVITY DISORDER
     Dosage: 10-20 MG (NOT SURE WHICH DOSE), UNKNOWN
     Route: 048

REACTIONS (4)
  - Confusional state [Unknown]
  - Drug effect decreased [Unknown]
  - Incorrect product storage [Unknown]
  - Disturbance in attention [Unknown]
